FAERS Safety Report 7698885-9 (Version None)
Quarter: 2011Q3

REPORT INFORMATION
  Report Type: 
  Country: None (occurrence: None)
  Receive Date: 20110819
  Receipt Date: 20110812
  Transmission Date: 20111222
  Serious: Yes (Disabling, Other)
  Sender: FDA-Public Use
  Company Number: PHEH2009US16963

PATIENT
  Sex: Female

DRUGS (1)
  1. ZOMETA [Suspect]

REACTIONS (30)
  - LUNG NEOPLASM [None]
  - PLEURAL EFFUSION [None]
  - OSTEONECROSIS OF JAW [None]
  - ABDOMINAL PAIN [None]
  - ANXIETY [None]
  - PYREXIA [None]
  - PNEUMONIA [None]
  - HEPATIC STEATOSIS [None]
  - ADNEXA UTERI CYST [None]
  - LYMPHADENOPATHY [None]
  - ANHEDONIA [None]
  - OSTEOLYSIS [None]
  - NAUSEA [None]
  - VOMITING [None]
  - PAIN [None]
  - CARDIOMEGALY [None]
  - OSTEOMYELITIS [None]
  - METASTASES TO BONE [None]
  - OSTEOSCLEROSIS [None]
  - OEDEMA PERIPHERAL [None]
  - HAEMATURIA [None]
  - OSTEOARTHRITIS [None]
  - OSTEOCHONDROSIS [None]
  - ATELECTASIS [None]
  - INJURY [None]
  - PNEUMOTHORAX [None]
  - PERICARDIAL EFFUSION [None]
  - METASTASES TO ADRENALS [None]
  - RENAL MASS [None]
  - DYSPNOEA [None]
